FAERS Safety Report 11319147 (Version 1)
Quarter: 2015Q3

REPORT INFORMATION
  Report Type: Spontaneous
  Country: US (occurrence: None)
  Receive Date: 20150727
  Receipt Date: 20150727
  Transmission Date: 20151125
  Serious: Yes (Hospitalization, Disabling, Other)
  Sender: FDA-Public Use
  Company Number: None

PATIENT
  Age: 78 Year
  Sex: Female
  Weight: 77.11 kg

DRUGS (10)
  1. COREG [Concomitant]
     Active Substance: CARVEDILOL
  2. ANASTROZOLE. [Concomitant]
     Active Substance: ANASTROZOLE
  3. ACETAMINOPHEN. [Concomitant]
     Active Substance: ACETAMINOPHEN
  4. GUMMY VITAMINS [Concomitant]
  5. BABY ASPIRIN [Concomitant]
     Active Substance: ASPIRIN
  6. TYLENOL [Concomitant]
     Active Substance: ACETAMINOPHEN
  7. STOOL SOFTNER [Concomitant]
  8. ALLERGY [Concomitant]
     Active Substance: UNSPECIFIED INGREDIENT
  9. ANASTROZOLE 1 MG TAAB UNKNOWN [Suspect]
     Active Substance: ANASTROZOLE
     Indication: BREAST CANCER
     Dosage: BY MOUTH DAILY WITH FOOD
     Route: 048
  10. GUMMY SUPPLEMENTS [Concomitant]

REACTIONS (9)
  - Medical device pain [None]
  - Fall [None]
  - Hip fracture [None]
  - Haematemesis [None]
  - Back pain [None]
  - Upper limb fracture [None]
  - Femur fracture [None]
  - Pelvic fracture [None]
  - Gastric disorder [None]

NARRATIVE: CASE EVENT DATE: 20150710
